FAERS Safety Report 16942418 (Version 1)
Quarter: 2019Q4

REPORT INFORMATION
  Report Type: Spontaneous
  Country: US (occurrence: US)
  Receive Date: 20191021
  Receipt Date: 20191021
  Transmission Date: 20200122
  Serious: No
  Sender: FDA-Public Use
  Company Number: US-SA-2019SA283621

PATIENT
  Age: 39 Year
  Sex: Male

DRUGS (3)
  1. FLEXERIL [CEFIXIME] [Concomitant]
     Active Substance: CEFIXIME
  2. DUPIXENT [Suspect]
     Active Substance: DUPILUMAB
     Dosage: 300 MG, QOW
     Route: 058
     Dates: start: 20170429
  3. VITAMIN D NOS [Concomitant]
     Active Substance: VITAMIN D NOS

REACTIONS (1)
  - Blood cholesterol increased [Unknown]
